FAERS Safety Report 18857981 (Version 1)
Quarter: 2021Q1

REPORT INFORMATION
  Report Type: Spontaneous
  Country: US (occurrence: US)
  Receive Date: 20210206
  Receipt Date: 20210206
  Transmission Date: 20210420
  Serious: Yes (Hospitalization)
  Sender: FDA-Public Use
  Company Number: None

PATIENT
  Age: 85 Year
  Sex: Male
  Weight: 65.25 kg

DRUGS (10)
  1. LINEZOLID 600 MG IV Q 12 HR [Concomitant]
  2. NOREPINEPHRINE DRIP [Concomitant]
  3. PANTOPRAZOLE DRIP [Concomitant]
  4. REMDESIVIR. [Suspect]
     Active Substance: REMDESIVIR
     Indication: COVID-19
     Route: 040
     Dates: start: 20210202, end: 20210204
  5. VASOPRESSIN DRIP [Concomitant]
  6. SIMVASTATIN 10 MG PO DAILY [Concomitant]
  7. FUROSEMIDE 40 MG IV Q 12 HR [Concomitant]
  8. DILTIAZEM DRIP [Concomitant]
  9. PHENYLEPHRINE DRIP [Concomitant]
  10. DEXAMETHASONE 6 MG IV DAILY [Concomitant]

REACTIONS (2)
  - Therapy cessation [None]
  - Alanine aminotransferase increased [None]

NARRATIVE: CASE EVENT DATE: 20210205
